FAERS Safety Report 9511222 (Version 2)
Quarter: 2014Q1

REPORT INFORMATION
  Report Type: Spontaneous
  Country: US (occurrence: None)
  Receive Date: 20130305
  Receipt Date: 20140306
  Transmission Date: 20141002
  Serious: Yes (Disabling, Other)
  Sender: FDA-Public Use
  Company Number: 163-21880-12122319

PATIENT
  Age: 82 Year
  Sex: Male

DRUGS (1)
  1. REVLIMID ( LENALIDOMIDE) (CAPSULES) [Suspect]
     Indication: PLASMA CELL MYELOMA
     Dosage: 7 IN 14 D
     Route: 048
     Dates: start: 20121025, end: 20121218

REACTIONS (2)
  - Joint swelling [None]
  - Deep vein thrombosis [None]
